FAERS Safety Report 6985363-5 (Version None)
Quarter: 2010Q3

REPORT INFORMATION
  Report Type: 
  Country: None (occurrence: None)
  Receive Date: 20100915
  Receipt Date: 20100825
  Transmission Date: 20110219
  Serious: No
  Sender: FDA-Public Use
  Company Number: US-PFIZER INC-2010092799

PATIENT
  Sex: Female
  Weight: 102 kg

DRUGS (13)
  1. LYRICA [Suspect]
     Indication: FIBROMYALGIA
     Dosage: 75 MG, 2X/DAY
     Route: 048
     Dates: start: 20100121, end: 20100201
  2. LYRICA [Suspect]
     Dosage: 25 MG, 3X/DAY
     Dates: start: 20100101, end: 20100201
  3. OMEPRAZOLE [Concomitant]
     Dosage: 20 MG, 1X/DAY
  4. LISINOPRIL [Concomitant]
     Indication: HYPERTENSION
     Dosage: 40 MG, 1X/DAY
  5. METFORMIN [Concomitant]
     Indication: DIABETES MELLITUS
     Dosage: 500 MG, 1X/DAY
  6. HYDROCHLOROTHIAZIDE [Concomitant]
     Dosage: 25 MG, 1X/DAY
  7. CRESTOR [Concomitant]
     Dosage: 40 MG, 1X/DAY
  8. AMITRIPTYLINE [Concomitant]
     Indication: ARTHRITIS
     Dosage: 25 MG, 1X/DAY
  9. LOVAZA [Concomitant]
     Dosage: 1000 UNITS, 3X/DAY
  10. ACETYLSALICYLIC ACID [Concomitant]
     Dosage: 81 MG, UNK
  11. CALCIUM [Concomitant]
     Dosage: UNK
  12. VITAMINS [Concomitant]
     Dosage: UNK
  13. VITAMIN D [Concomitant]
     Dosage: 2000 UNITS, 1X/DAY

REACTIONS (5)
  - DIZZINESS [None]
  - FEELING ABNORMAL [None]
  - HEADACHE [None]
  - MENTAL IMPAIRMENT [None]
  - PHOBIA OF DRIVING [None]
